FAERS Safety Report 5476827-4 (Version None)
Quarter: 2007Q4

REPORT INFORMATION
  Report Type: 
  Country: None (occurrence: None)
  Receive Date: 20071004
  Receipt Date: 20070806
  Transmission Date: 20080405
  Serious: Yes (Other)
  Sender: FDA-Public Use
  Company Number: GB-BRISTOL-MYERS SQUIBB COMPANY-13924675

PATIENT

DRUGS (1)
  1. SINEMET CR [Suspect]

REACTIONS (1)
  - CEREBROVASCULAR ACCIDENT [None]
